FAERS Safety Report 14029388 (Version 1)
Quarter: 2017Q4

REPORT INFORMATION
  Report Type: Spontaneous
  Country: US (occurrence: US)
  Receive Date: 20171002
  Receipt Date: 20171002
  Transmission Date: 20180321
  Serious: Yes (Other)
  Sender: FDA-Public Use
  Company Number: None

PATIENT
  Age: 73 Year
  Sex: Female
  Weight: 72 kg

DRUGS (1)
  1. AMPICILLIN/SULBACTAM [Suspect]
     Active Substance: AMPICILLIN SODIUM\SULBACTAM SODIUM
     Indication: WHITE BLOOD CELL COUNT INCREASED
     Route: 041
     Dates: start: 20170501, end: 20170501

REACTIONS (2)
  - Drug hypersensitivity [None]
  - Drug prescribing error [None]

NARRATIVE: CASE EVENT DATE: 20170501
